FAERS Safety Report 5305442-8 (Version None)
Quarter: 2007Q2

REPORT INFORMATION
  Report Type: 
  Country: None (occurrence: None)
  Receive Date: 20070416
  Receipt Date: 20070329
  Transmission Date: 20071010
  Serious: Yes (Hospitalization, Other)
  Sender: FDA-Public Use
  Company Number: 07032063

PATIENT
  Age: 60 Year
  Sex: Female

DRUGS (3)
  1. ETODOLAC [Suspect]
     Dosage: ORAL
     Route: 048
  2. AMOXICILLIN [Suspect]
     Dosage: OTHER
  3. REBIF [Suspect]
     Dosage: 44MCG,TIW,INTRAMUSCULAR
     Route: 030

REACTIONS (8)
  - CHILLS [None]
  - DRUG HYPERSENSITIVITY [None]
  - ERYTHEMA [None]
  - JAW DISORDER [None]
  - MULTIPLE SCLEROSIS RELAPSE [None]
  - MUSCULAR WEAKNESS [None]
  - RASH MACULAR [None]
  - SWELLING FACE [None]
